FAERS Safety Report 10243066 (Version 5)
Quarter: 2014Q3

REPORT INFORMATION
  Report Type: Report from Study
  Country: US (occurrence: None)
  Receive Date: 20140613
  Receipt Date: 20140828
  Transmission Date: 20150326
  Serious: Yes (Other)
  Sender: FDA-Public Use
  Company Number: AUR-APL-2014-06362

PATIENT
  Age: 56 Year
  Sex: Female
  Weight: 45.3 kg

DRUGS (11)
  1. ATENOLOL TABLETS USP 50MG (ATENOLOL) [Suspect]
     Active Substance: ATENOLOL
     Indication: BLOOD PRESSURE
     Route: 048
     Dates: start: 2008
  2. ASPIRIN (ACETYLSALICYLIC ACID) [Concomitant]
     Active Substance: ASPIRIN
  3. IBUPROFEN (IBUPROFEN) [Concomitant]
     Active Substance: IBUPROFEN
  4. OMEPRAZOLE (OMEPRAZOLE) [Suspect]
     Active Substance: OMEPRAZOLE
     Indication: GASTROOESOPHAGEAL REFLUX DISEASE
     Route: 048
     Dates: start: 201311, end: 201311
  5. HYDROCHLOROTHIAZIDE (HYDROCHLOROTHIAZIDE) [Concomitant]
     Active Substance: HYDROCHLOROTHIAZIDE
  6. NEXIUM [Suspect]
     Active Substance: ESOMEPRAZOLE MAGNESIUM
     Indication: GASTROOESOPHAGEAL REFLUX DISEASE
     Route: 048
     Dates: start: 2004, end: 2011
  7. GABAPENTIN (GABAPENTIN) [Concomitant]
     Active Substance: GABAPENTIN
  8. NEURONTIN [Concomitant]
     Active Substance: GABAPENTIN
  9. ACETAMINOPHEN (PARACETAMOL) [Concomitant]
     Active Substance: ACETAMINOPHEN
  10. TRAMADOL (TRAMADOL) [Concomitant]
     Active Substance: TRAMADOL
  11. LISINOPRIL. [Suspect]
     Active Substance: LISINOPRIL
     Indication: BLOOD PRESSURE INCREASED
     Route: 048
     Dates: start: 2008

REACTIONS (15)
  - Hypertension [None]
  - Diarrhoea [None]
  - Feeling abnormal [None]
  - Drug dose omission [None]
  - Eructation [None]
  - Vomiting [None]
  - Body height decreased [None]
  - Peripheral swelling [None]
  - Scoliosis [None]
  - Walking aid user [None]
  - Gastrooesophageal reflux disease [None]
  - Musculoskeletal disorder [None]
  - Urine output increased [None]
  - Hypophagia [None]
  - Blood pressure fluctuation [None]

NARRATIVE: CASE EVENT DATE: 2006
